FAERS Safety Report 6620274-6 (Version None)
Quarter: 2010Q1

REPORT INFORMATION
  Report Type: 
  Country: None (occurrence: None)
  Receive Date: 20100308
  Receipt Date: 20100308
  Transmission Date: 20100710
  Serious: Yes (Death)
  Sender: FDA-Public Use
  Company Number: None

PATIENT
  Age: 79 Year
  Sex: Male

DRUGS (10)
  1. REVLIMID [Suspect]
     Indication: MULTIPLE MYELOMA
     Dosage: REVLIMID 10MG DAILY X21DAYS ORAL
     Route: 048
     Dates: start: 20080216, end: 20091028
  2. DEXAMETHASONE [Concomitant]
  3. METOPROLOL [Concomitant]
  4. LEVOTHROID [Concomitant]
  5. INSULIN [Concomitant]
  6. GLIPIZIDE [Concomitant]
  7. DIGOXIN [Concomitant]
  8. LOVASTATIN [Concomitant]
  9. LISINOPRIL [Concomitant]
  10. FUROSEMIDE [Concomitant]

REACTIONS (1)
  - MENTAL STATUS CHANGES [None]
